FAERS Safety Report 4465346-X (Version None)
Quarter: 2004Q3

REPORT INFORMATION
  Report Type: 
  Country: None (occurrence: None)
  Receive Date: 20040929
  Receipt Date: 20040920
  Transmission Date: 20050211
  Serious: No
  Sender: FDA-Public Use
  Company Number: 2004UW17583

PATIENT
  Age: 47 Year
  Sex: Female

DRUGS (3)
  1. DIPRIVAN [Suspect]
     Indication: ANKLE OPERATION
  2. DIPRIVAN [Suspect]
     Indication: INDUCTION OF ANAESTHESIA
  3. LIPITOR [Suspect]
     Dosage: 20 MG DAILY

REACTIONS (5)
  - ANKLE FRACTURE [None]
  - DIALYSIS [None]
  - DRUG INTERACTION [None]
  - RENAL FAILURE ACUTE [None]
  - RHABDOMYOLYSIS [None]
